FAERS Safety Report 10561715 (Version 2)
Quarter: 2014Q4

REPORT INFORMATION
  Report Type: Spontaneous
  Country: US (occurrence: US)
  Receive Date: 20141103
  Receipt Date: 20141110
  Transmission Date: 20150529
  Serious: No
  Sender: FDA-Public Use
  Company Number: US-GILEAD-2014-0120588

PATIENT
  Age: 56 Year
  Sex: Female

DRUGS (2)
  1. RIBASPHERE RIBAPAK [Concomitant]
     Active Substance: RIBAVIRIN
     Indication: HEPATITIS C
  2. SOVALDI [Suspect]
     Active Substance: SOFOSBUVIR
     Indication: HEPATITIS C
     Dosage: 400 MG, QD
     Route: 048
     Dates: start: 20141009

REACTIONS (6)
  - Headache [Unknown]
  - Pruritus [Unknown]
  - Fatigue [Unknown]
  - Influenza like illness [Unknown]
  - Platelet count decreased [Unknown]
  - Rash [Unknown]

NARRATIVE: CASE EVENT DATE: 20141016
